FAERS Safety Report 4755832-7 (Version None)
Quarter: 2005Q3

REPORT INFORMATION
  Report Type: 
  Country: None (occurrence: None)
  Receive Date: 20050830
  Receipt Date: 20050502
  Transmission Date: 20060218
  Serious: Yes (Hospitalization)
  Sender: FDA-Public Use
  Company Number: US-BRISTOL-MYERS SQUIBB COMPANY-12952842

PATIENT
  Age: 50 Year
  Sex: Male
  Weight: 66 kg

DRUGS (5)
  1. ERBITUX [Suspect]
     Indication: TONGUE NEOPLASM MALIGNANT STAGE UNSPECIFIED
     Dosage: 4TH TREATMENT.
     Route: 042
     Dates: start: 20050425, end: 20050425
  2. ERBITUX [Suspect]
     Indication: SKIN CANCER
     Dosage: 4TH TREATMENT.
     Route: 042
     Dates: start: 20050425, end: 20050425
  3. BENADRYL [Concomitant]
     Indication: PREMEDICATION
     Dates: start: 20050425, end: 20050425
  4. OXYCONTIN [Concomitant]
  5. HERBAL PREPARATION [Concomitant]

REACTIONS (1)
  - PYREXIA [None]
